FAERS Safety Report 9556137 (Version 1)
Quarter: 2013Q3

REPORT INFORMATION
  Report Type: Spontaneous
  Country: IT (occurrence: None)
  Receive Date: 20130924
  Receipt Date: 20130924
  Transmission Date: 20140515
  Serious: Yes (Hospitalization, Other)
  Sender: FDA-Public Use
  Company Number: USA/ITL/13/0034592

PATIENT
  Sex: Male
  Weight: 3.86 kg

DRUGS (1)
  1. CITALOPRAM (CITALOPRAM) [Suspect]
     Indication: PRODUCT USED FOR UNKNOWN INDICATION
     Dosage: 1 IN 1 D
     Route: 064

REACTIONS (4)
  - Serotonin syndrome [None]
  - Drug withdrawal syndrome neonatal [None]
  - Blood creatine phosphokinase increased [None]
  - Maternal drugs affecting foetus [None]
